FAERS Safety Report 13569519 (Version 3)
Quarter: 2017Q3

REPORT INFORMATION
  Report Type: Spontaneous
  Country: JP (occurrence: JP)
  Receive Date: 20170522
  Receipt Date: 20170809
  Transmission Date: 20171127
  Serious: Yes (Life-Threatening, Other)
  Sender: FDA-Public Use
  Company Number: JP-ELI_LILLY_AND_COMPANY-JP201705006191

PATIENT
  Age: 75 Year
  Sex: Male
  Weight: 51 kg

DRUGS (6)
  1. BAYCARON [Concomitant]
     Active Substance: MEFRUSIDE
     Indication: PRODUCT USED FOR UNKNOWN INDICATION
     Dosage: 25 MG, EACH MORNING
     Route: 048
  2. METHYCOBAL [Concomitant]
     Active Substance: METHYLCOBALAMIN
     Indication: PROPHYLAXIS
     Dosage: 1 MG, DAILY
     Route: 030
     Dates: start: 20170201
  3. AVASTIN [Concomitant]
     Active Substance: BEVACIZUMAB
     Indication: NON-SMALL CELL LUNG CANCER STAGE IV
     Dosage: 760 MG, CYCLICAL
     Route: 041
     Dates: start: 20170220, end: 20170220
  4. AMLODIPINE [Concomitant]
     Active Substance: AMLODIPINE BESYLATE
     Indication: PRODUCT USED FOR UNKNOWN INDICATION
     Dosage: 5 MG, EACH MORNING
     Route: 048
  5. ALIMTA [Suspect]
     Active Substance: PEMETREXED DISODIUM
     Indication: NON-SMALL CELL LUNG CANCER STAGE IV
     Dosage: 73.0 MG/M2, CYCLICAL
     Route: 041
     Dates: start: 20170220, end: 20170220
  6. PANVITAN                           /05664401/ [Concomitant]
     Indication: PROPHYLAXIS
     Dosage: 1 G, DAILY
     Route: 048
     Dates: start: 20170201, end: 20170307

REACTIONS (4)
  - Alanine aminotransferase increased [Recovering/Resolving]
  - Febrile neutropenia [Recovered/Resolved]
  - Lung disorder [Recovered/Resolved with Sequelae]
  - Aspartate aminotransferase increased [Recovering/Resolving]

NARRATIVE: CASE EVENT DATE: 20170227
